FAERS Safety Report 13968383 (Version 1)
Quarter: 2017Q3

REPORT INFORMATION
  Report Type: Spontaneous
  Country: US (occurrence: US)
  Receive Date: 20170914
  Receipt Date: 20170914
  Transmission Date: 20171128
  Serious: Yes (Other)
  Sender: FDA-Public Use
  Company Number: US-RECORDATI RARE DISEASES-US-R13005-17-00183

PATIENT
  Age: 46 Year
  Sex: Female

DRUGS (3)
  1. PANHEMATIN [Suspect]
     Active Substance: HEMIN
     Indication: PORPHYRIA
     Route: 042
     Dates: start: 2002
  2. PANHEMATIN [Suspect]
     Active Substance: HEMIN
     Route: 041
     Dates: start: 2008, end: 20170817
  3. PANHEMATIN [Suspect]
     Active Substance: HEMIN
     Route: 041
     Dates: start: 20170719

REACTIONS (7)
  - Urticaria [Recovered/Resolved]
  - Off label use [Unknown]
  - Nausea [Recovered/Resolved]
  - Migraine [Not Recovered/Not Resolved]
  - Malaise [Not Recovered/Not Resolved]
  - Hypotension [Recovered/Resolved]
  - Heart rate increased [Recovered/Resolved]

NARRATIVE: CASE EVENT DATE: 20170719
